FAERS Safety Report 8831946 (Version 1)
Quarter: 2012Q4

REPORT INFORMATION
  Report Type: 
  Country: US (occurrence: US)
  Receive Date: 20121009
  Receipt Date: 20121009
  Transmission Date: 20130627
  Serious: No
  Sender: FDA-Public Use
  Company Number: US-ASTRAZENECA-2012SE73805

PATIENT
  Age: 72 Year
  Sex: Female

DRUGS (3)
  1. LISINOPRIL HCTZ [Suspect]
     Route: 048
  2. VALTURNA [Suspect]
     Dosage: 150/160 MG , UNKNOWN
     Route: 065
  3. VALTURNA [Suspect]
     Dosage: 300/320 MG ,  UNKNOWN
     Route: 065

REACTIONS (2)
  - Cardiac disorder [Unknown]
  - Drug dose omission [Unknown]
